FAERS Safety Report 4953551-5 (Version None)
Quarter: 2006Q1

REPORT INFORMATION
  Report Type: 
  Country: None (occurrence: None)
  Receive Date: 20060324
  Receipt Date: 20051207
  Transmission Date: 20060701
  Serious: Yes (Hospitalization)
  Sender: FDA-Public Use
  Company Number: US-MERCK-0512USA01665

PATIENT
  Age: 53 Year
  Sex: Male
  Weight: 105 kg

DRUGS (1)
  1. VIOXX [Suspect]
     Indication: INFLAMMATION
     Route: 048
     Dates: start: 20020101, end: 20040801

REACTIONS (5)
  - ARTHROPATHY [None]
  - CARDIAC DISORDER [None]
  - MUSCULOSKELETAL DISCOMFORT [None]
  - ROTATOR CUFF SYNDROME [None]
  - THROMBOSIS [None]
